FAERS Safety Report 4777159-X (Version None)
Quarter: 2005Q3

REPORT INFORMATION
  Report Type: 
  Country: None (occurrence: None)
  Receive Date: 20050923
  Receipt Date: 20050914
  Transmission Date: 20060218
  Serious: Yes (Other)
  Sender: FDA-Public Use
  Company Number: US-ROCHE-417888

PATIENT
  Age: 58 Year
  Sex: Male
  Weight: 113.4 kg

DRUGS (2)
  1. PEGASYS [Suspect]
     Dosage: STRENGTH: 180 MCG/0.5 ML
     Route: 058
     Dates: start: 20050415
  2. COPEGUS [Suspect]
     Route: 048
     Dates: start: 20050415

REACTIONS (7)
  - ASTHENIA [None]
  - CATARACT [None]
  - DECREASED APPETITE [None]
  - FATIGUE [None]
  - MUSCLE SPASMS [None]
  - VISUAL ACUITY REDUCED [None]
  - WEIGHT DECREASED [None]
